FAERS Safety Report 6899575-2 (Version None)
Quarter: 2010Q3

REPORT INFORMATION
  Report Type: 
  Country: None (occurrence: None)
  Receive Date: 20100729
  Receipt Date: 20100723
  Transmission Date: 20110219
  Serious: Yes (Other)
  Sender: FDA-Public Use
  Company Number: 20109050

PATIENT
  Age: 13 Year
  Sex: Female

DRUGS (1)
  1. LIORESAL [Suspect]
     Indication: MUSCLE SPASTICITY
     Dosage: 200 MCG, DAILY, INTRATHECAL
     Route: 037

REACTIONS (6)
  - INCISION SITE COMPLICATION [None]
  - INCISION SITE ERYTHEMA [None]
  - SCAR [None]
  - SKIN DISCOLOURATION [None]
  - STAPHYLOCOCCAL ABSCESS [None]
  - STITCH ABSCESS [None]
